FAERS Safety Report 15898274 (Version 1)
Quarter: 2019Q1

REPORT INFORMATION
  Report Type: Report from Study
  Country: None (occurrence: DE)
  Receive Date: 20190201
  Receipt Date: 20190201
  Transmission Date: 20190417
  Serious: Yes (Hospitalization)
  Sender: FDA-Public Use
  Company Number: DE-ABBVIE-19S-062-2645064-00

PATIENT
  Sex: Male

DRUGS (1)
  1. DUODOPA [Suspect]
     Active Substance: CARBIDOPA\LEVODOPA
     Indication: PARKINSON^S DISEASE
     Dosage: MD 7ML  CRD 6.2ML/H  CRN 3.1ML/H  ED 2.5ML
     Route: 050
     Dates: start: 20140715

REACTIONS (2)
  - Device occlusion [Unknown]
  - Embedded device [Not Recovered/Not Resolved]
